FAERS Safety Report 15093210 (Version 1)
Quarter: 2018Q3

REPORT INFORMATION
  Report Type: Spontaneous
  Country: ZA (occurrence: ZA)
  Receive Date: 20180629
  Receipt Date: 20180629
  Transmission Date: 20181010
  Serious: Yes (Death)
  Sender: FDA-Public Use
  Company Number: ZA-PFIZER INC-2018262845

PATIENT
  Age: 79 Year
  Sex: Female

DRUGS (9)
  1. PURESIS [Suspect]
     Active Substance: FUROSEMIDE
     Dosage: 40 MG, UNK
  2. DOPAQUEL [Suspect]
     Active Substance: QUETIAPINE
     Dosage: 100 MG, UNK
  3. DONECEPT [Suspect]
     Active Substance: DONEPEZIL HYDROCHLORIDE
     Dosage: 10 MG, UNK
  4. TREPILINE /00002201/ [Suspect]
     Active Substance: AMITRIPTYLINE
     Dosage: 25 MG, UNK
  5. ECOTRIN [Suspect]
     Active Substance: ASPIRIN
     Dosage: 81 MG, UNK
  6. CELEBREX [Suspect]
     Active Substance: CELECOXIB
     Dosage: 200 MG, UNK
  7. SERDEP (SERTRALINE HYDROCHLORIDE) [Suspect]
     Active Substance: SERTRALINE HYDROCHLORIDE
     Dosage: 100 MG, UNK
  8. DOPAQUEL [Suspect]
     Active Substance: QUETIAPINE
     Dosage: 25 MG, UNK
  9. PREXUM [Suspect]
     Active Substance: PERINDOPRIL ERBUMINE
     Dosage: 5 MG, UNK

REACTIONS (1)
  - Death [Fatal]
